FAERS Safety Report 19012249 (Version 2)
Quarter: 2022Q4

REPORT INFORMATION
  Report Type: Spontaneous
  Country: US (occurrence: US)
  Receive Date: 20210315
  Receipt Date: 20221005
  Transmission Date: 20230113
  Serious: Yes (Death, Other)
  Sender: FDA-Public Use
  Company Number: US-SA-SAC20210310001569

PATIENT
  Age: 51 Year
  Sex: Male

DRUGS (1)
  1. ZANTAC [Suspect]
     Active Substance: RANITIDINE HYDROCHLORIDE
     Indication: Dyspepsia
     Dosage: 150 MG, QD
     Dates: start: 200201, end: 201901

REACTIONS (3)
  - Oesophageal carcinoma [Fatal]
  - Gastric cancer stage IV [Not Recovered/Not Resolved]
  - Prostate cancer stage III [Unknown]

NARRATIVE: CASE EVENT DATE: 20040101
